FAERS Safety Report 24724531 (Version 2)
Quarter: 2024Q4

REPORT INFORMATION
  Report Type: Spontaneous
  Country: US (occurrence: US)
  Receive Date: 20241212
  Receipt Date: 20241220
  Transmission Date: 20250114
  Serious: No
  Sender: ROCHE
  Company Number: US-ROCHE-10000151427

PATIENT
  Age: 73 Year
  Sex: Male
  Weight: 104.32 kg

DRUGS (3)
  1. ACTEMRA ACTPEN [Suspect]
     Active Substance: TOCILIZUMAB
     Indication: Psoriatic arthropathy
     Route: 058
  2. ACTEMRA ACTPEN [Suspect]
     Active Substance: TOCILIZUMAB
     Indication: Psoriasis
  3. CELEBREX [Concomitant]
     Active Substance: CELECOXIB
     Indication: Pain

REACTIONS (6)
  - Contusion [Not Recovered/Not Resolved]
  - Device difficult to use [Unknown]
  - Product preparation error [Unknown]
  - Device issue [Unknown]
  - Device defective [Unknown]
  - Off label use [Unknown]

NARRATIVE: CASE EVENT DATE: 20240101
